FAERS Safety Report 18721993 (Version 3)
Quarter: 2021Q4

REPORT INFORMATION
  Report Type: Spontaneous
  Country: GB (occurrence: GB)
  Receive Date: 20210111
  Receipt Date: 20211106
  Transmission Date: 20220303
  Serious: Yes (Other)
  Sender: FDA-Public Use
  Company Number: GB-MHRA-EYC 00235405

PATIENT
  Age: 88 Year
  Sex: Female

DRUGS (2)
  1. AMOXICILLIN [Interacting]
     Active Substance: AMOXICILLIN
     Indication: Product used for unknown indication
     Dosage: UNK
     Route: 065
  2. WARFARIN [Interacting]
     Active Substance: WARFARIN
     Indication: Ill-defined disorder
     Dosage: UNK
     Route: 048
     Dates: start: 20200304, end: 20200304

REACTIONS (2)
  - International normalised ratio increased [Unknown]
  - Drug interaction [Unknown]
